FAERS Safety Report 22187717 (Version 1)
Quarter: 2023Q2

REPORT INFORMATION
  Report Type: Spontaneous
  Country: US (occurrence: US)
  Receive Date: 20230408
  Receipt Date: 20230408
  Transmission Date: 20230721
  Serious: No
  Sender: FDA-Public Use
  Company Number: US-ABBVIE-4331311

PATIENT

DRUGS (2)
  1. RINVOQ [Suspect]
     Active Substance: UPADACITINIB
     Indication: Colitis ulcerative
     Route: 048
  2. RINVOQ [Suspect]
     Active Substance: UPADACITINIB
     Indication: Colitis ulcerative
     Route: 048
     Dates: start: 202302

REACTIONS (5)
  - Haemoglobin abnormal [Not Recovered/Not Resolved]
  - Neutropenia [Unknown]
  - Anaemia [Not Recovered/Not Resolved]
  - White blood cell count abnormal [Unknown]
  - Leukopenia [Unknown]
